FAERS Safety Report 18069358 (Version 1)
Quarter: 2020Q3

REPORT INFORMATION
  Report Type: Spontaneous
  Country: VE (occurrence: VE)
  Receive Date: 20200725
  Receipt Date: 20200725
  Transmission Date: 20201103
  Serious: Yes (Death, Other)
  Sender: FDA-Public Use
  Company Number: NVSC2020VE208246

PATIENT
  Sex: Male

DRUGS (1)
  1. GLIVEC [Suspect]
     Active Substance: IMATINIB MESYLATE
     Indication: CHRONIC MYELOID LEUKAEMIA
     Dosage: 400 MG (4X100 MG TABLET) (STOPPED APPROXIMATELY 3 MONTHS AGO)
     Route: 065

REACTIONS (5)
  - Product dose omission issue [Unknown]
  - Influenza [Unknown]
  - Death [Fatal]
  - Pneumonia [Unknown]
  - General physical health deterioration [Unknown]
